FAERS Safety Report 21099648 (Version 1)
Quarter: 2022Q3

REPORT INFORMATION
  Report Type: Spontaneous
  Country: US (occurrence: US)
  Receive Date: 20220719
  Receipt Date: 20220719
  Transmission Date: 20221026
  Serious: Yes (Hospitalization)
  Sender: FDA-Public Use
  Company Number: US-JNJFOC-20220733637

PATIENT
  Age: 7 Month
  Sex: Female
  Weight: 8.4 kg

DRUGS (2)
  1. ACETAMINOPHEN [Suspect]
     Active Substance: ACETAMINOPHEN
     Indication: Suspected COVID-19
     Dosage: 5ML OR 160MG EVERY 4 HOURS FOR 5 DAYS.
     Route: 048
     Dates: start: 202207
  2. IBUPROFEN [Suspect]
     Active Substance: IBUPROFEN
     Indication: Suspected COVID-19
     Route: 065
     Dates: start: 202207

REACTIONS (10)
  - Mental status changes [Recovered/Resolved]
  - Acidosis [Recovered/Resolved]
  - International normalised ratio increased [Recovered/Resolved]
  - Thrombocytopenia [Recovered/Resolved]
  - Diarrhoea [Recovered/Resolved]
  - Aspartate aminotransferase increased [Recovered/Resolved]
  - Alanine aminotransferase increased [Recovered/Resolved]
  - Nausea [Recovered/Resolved]
  - Vomiting [Recovered/Resolved]
  - Overdose [Unknown]

NARRATIVE: CASE EVENT DATE: 20220701
